FAERS Safety Report 17661907 (Version 1)
Quarter: 2020Q2

REPORT INFORMATION
  Report Type: Spontaneous
  Country: US (occurrence: US)
  Receive Date: 20200413
  Receipt Date: 20200413
  Transmission Date: 20200713
  Serious: Yes (Life-Threatening, Hospitalization)
  Sender: FDA-Public Use
  Company Number: None

PATIENT
  Age: 81 Year
  Sex: Female
  Weight: 84.6 kg

DRUGS (4)
  1. KEYTRUDA [Concomitant]
     Active Substance: PEMBROLIZUMAB
     Dates: start: 20200413, end: 20200413
  2. TAXOL [Suspect]
     Active Substance: PACLITAXEL
     Indication: NON-SMALL CELL LUNG CANCER
     Dosage: ?          OTHER FREQUENCY:ONCE EVERY 3 WEEKS;?
     Route: 041
     Dates: start: 20200413, end: 20200413
  3. EMEND [Concomitant]
     Active Substance: APREPITANT
     Dates: start: 20200413, end: 20200413
  4. ALOXI [Concomitant]
     Active Substance: PALONOSETRON HYDROCHLORIDE
     Dates: start: 20200413, end: 20200413

REACTIONS (3)
  - Malaise [None]
  - Cardio-respiratory arrest [None]
  - Infusion related reaction [None]

NARRATIVE: CASE EVENT DATE: 20200413
